FAERS Safety Report 8799672 (Version 1)
Quarter: 2012Q4

REPORT INFORMATION
  Report Type: 
  Country: US (occurrence: US)
  Receive Date: 20120919
  Receipt Date: 20120919
  Transmission Date: 20130627
  Serious: Yes (Other)
  Sender: FDA-Public Use
  Company Number: US-009507513-1209USA006294

PATIENT

DRUGS (3)
  1. ZOCOR [Suspect]
     Indication: HYPERCHOLESTEROLAEMIA
     Dosage: 40 mg, UNK
     Route: 048
     Dates: start: 2005, end: 2005
  2. VICODIN [Suspect]
  3. LIPITOR [Suspect]

REACTIONS (9)
  - Paresis [Not Recovered/Not Resolved]
  - Abasia [Unknown]
  - Fibromyalgia [Unknown]
  - Weight increased [Unknown]
  - Device failure [Unknown]
  - Myopathy [Not Recovered/Not Resolved]
  - Gastrointestinal pain [Not Recovered/Not Resolved]
  - Dental implantation [Unknown]
  - Muscle disorder [Not Recovered/Not Resolved]
